FAERS Safety Report 9261733 (Version 1)
Quarter: 2013Q2

REPORT INFORMATION
  Report Type: Spontaneous
  Country: RU (occurrence: RU)
  Receive Date: 20130429
  Receipt Date: 20130429
  Transmission Date: 20140414
  Serious: Yes (Hospitalization)
  Sender: FDA-Public Use
  Company Number: RU-PFIZER INC-2013126490

PATIENT
  Age: 81 Year
  Sex: Male

DRUGS (3)
  1. LYRICA [Suspect]
     Indication: TRIGEMINAL NEURALGIA
     Dosage: 75 MG, 2X/DAY
     Route: 048
     Dates: start: 20130404, end: 20130406
  2. CELEBREX [Concomitant]
     Dosage: 200 MG, 1X/DAY
     Route: 048
  3. SIRDALUD [Concomitant]
     Dosage: 4 MG, 1X/DAY
     Route: 048

REACTIONS (2)
  - Blood pressure decreased [Unknown]
  - Convulsion [Unknown]
